FAERS Safety Report 17073611 (Version 2)
Quarter: 2020Q2

REPORT INFORMATION
  Report Type: Report from Study
  Country: US (occurrence: US)
  Receive Date: 20191126
  Receipt Date: 20200422
  Transmission Date: 20200713
  Serious: Yes (Death)
  Sender: FDA-Public Use
  Company Number: US-ACTELION-A-US2019-198284

PATIENT
  Sex: Male

DRUGS (1)
  1. OPSUMIT [Suspect]
     Active Substance: MACITENTAN
     Indication: PULMONARY ARTERIAL HYPERTENSION
     Dosage: 10 MG, QD
     Route: 048
     Dates: start: 20141114, end: 20191022

REACTIONS (5)
  - Pulmonary fibrosis [Fatal]
  - Tracheostomy [Fatal]
  - Chronic respiratory failure [Fatal]
  - Right ventricular failure [Fatal]
  - Hospice care [Unknown]
